FAERS Safety Report 9385889 (Version 2)
Quarter: 2013Q3

REPORT INFORMATION
  Report Type: Spontaneous
  Country: US (occurrence: US)
  Receive Date: 20130705
  Receipt Date: 20130725
  Transmission Date: 20140515
  Serious: Yes (Life-Threatening, Hospitalization, Disabling, Other)
  Sender: FDA-Public Use
  Company Number: US-MERCK-1306USA014598

PATIENT
  Age: 79 Year
  Sex: Male
  Weight: 92.52 kg

DRUGS (3)
  1. JANUVIA [Suspect]
     Indication: DIABETES MELLITUS
     Dosage: 100 MG, ONCE DAILY
     Route: 048
     Dates: start: 20091105, end: 20130116
  2. METFORMIN [Concomitant]
     Indication: DIABETES MELLITUS
     Dosage: 500 MG, BID
     Route: 048
     Dates: start: 2009
  3. ZOCOR [Concomitant]
     Indication: BLOOD CHOLESTEROL
     Dosage: 40 MG, QD
     Dates: start: 2011

REACTIONS (8)
  - Adenocarcinoma pancreas [Not Recovered/Not Resolved]
  - Gastric ulcer [Unknown]
  - Intestinal obstruction [Unknown]
  - Metastases to liver [Unknown]
  - Pulmonary fibrosis [Unknown]
  - Atelectasis [Unknown]
  - Hiatus hernia [Unknown]
  - Diverticulum intestinal [Unknown]
